FAERS Safety Report 10694719 (Version 1)
Quarter: 2015Q1

REPORT INFORMATION
  Report Type: Spontaneous
  Country: AR (occurrence: AR)
  Receive Date: 20150107
  Receipt Date: 20150107
  Transmission Date: 20150721
  Serious: Yes (Other)
  Sender: FDA-Public Use
  Company Number: AR-SA-2015SA000784

PATIENT
  Age: 25 Year
  Sex: Female

DRUGS (1)
  1. CEREZYME [Suspect]
     Active Substance: IMIGLUCERASE
     Indication: GAUCHER^S DISEASE
     Route: 041
     Dates: start: 2000

REACTIONS (2)
  - Partial seizures [Recovering/Resolving]
  - Stress [Recovering/Resolving]

NARRATIVE: CASE EVENT DATE: 201412
